FAERS Safety Report 13313979 (Version 1)
Quarter: 2017Q1

REPORT INFORMATION
  Report Type: Spontaneous
  Country: FR (occurrence: FR)
  Receive Date: 20170309
  Receipt Date: 20170309
  Transmission Date: 20170428
  Serious: Yes (Hospitalization)
  Sender: FDA-Public Use
  Company Number: FR-ASTRAZENECA-2017SE23838

PATIENT
  Age: 59 Year
  Sex: Male

DRUGS (27)
  1. CRESTOR [Suspect]
     Active Substance: ROSUVASTATIN CALCIUM
     Route: 048
  2. HYDROXYZINE [Suspect]
     Active Substance: HYDROXYZINE HYDROCHLORIDE
     Route: 048
  3. FUMAFER [Concomitant]
     Active Substance: FERROUS FUMARATE
  4. OXYNORM [Concomitant]
     Active Substance: OXYCODONE HYDROCHLORIDE
     Dosage: (20MG AT MORNING AND 10MG AT EVENING)
     Dates: start: 2015
  5. CLOMIPRAMINE [Suspect]
     Active Substance: CLOMIPRAMINE
     Dosage: 25 AND 75MG (100 MG, THREE TIME  DAILY)
     Route: 048
     Dates: start: 201609, end: 20161206
  6. LANSOPRAZOLE. [Concomitant]
     Active Substance: LANSOPRAZOLE
  7. MACROGOL [Concomitant]
     Active Substance: POLYETHYLENE GLYCOLS
     Dosage: 4000 TWICE A DAY
  8. VITAMIN D3 [Concomitant]
     Active Substance: CHOLECALCIFEROL
  9. OXYCONTIN [Concomitant]
     Active Substance: OXYCODONE HYDROCHLORIDE
     Dosage: 70MG AT MORNING AND 60MG AT EVENING
     Dates: start: 2015
  10. NICORETTE [Concomitant]
     Active Substance: NICOTINE
     Dosage: 25MG/16H ONE DF A DAY
  11. SPECIAFOLDINE [Concomitant]
     Active Substance: FOLIC ACID
  12. VALIUM [Concomitant]
     Active Substance: DIAZEPAM
  13. LOVENOX [Concomitant]
     Active Substance: ENOXAPARIN SODIUM
  14. CRESTOR [Suspect]
     Active Substance: ROSUVASTATIN CALCIUM
     Route: 048
     Dates: end: 20161130
  15. VALIUM [Concomitant]
     Active Substance: DIAZEPAM
  16. LANSOYL [Concomitant]
     Active Substance: MINERAL OIL
     Dosage: UNIDOSE ONE DOSE THREE TIMES A DAY
  17. AZINC [Concomitant]
  18. OXYNORM [Concomitant]
     Active Substance: OXYCODONE HYDROCHLORIDE
     Dosage: 5 MG AT EVENING
  19. NICOTINE. [Concomitant]
     Active Substance: NICOTINE
     Dosage: 4MG FROM ONE GUM TO 10 GUMS A DAY (MINT WITH NO SUGAR)
  20. NICORETTE [Concomitant]
     Active Substance: NICOTINE
     Dosage: PUFF 10MG ONE PUFF A DAY
  21. AMOXICILLIN CLAVULANIC ACID [Suspect]
     Active Substance: AMOXICILLIN\CLAVULANIC ACID
     Dosage: 1 G (1DF, THREE TIME, DAILY)
     Route: 042
     Dates: start: 20161127, end: 20161130
  22. AMOXICILLIN CLAVULANIC ACID [Suspect]
     Active Substance: AMOXICILLIN\CLAVULANIC ACID
     Dosage: 1 G, THREE TIME, DAILY
     Route: 048
     Dates: start: 20161130, end: 20161206
  23. MICROLAX [Concomitant]
     Indication: FAECES SOFT
     Dosage: 1DF A DAY
  24. VITAMIN B12 [Concomitant]
     Active Substance: CYANOCOBALAMIN
     Dosage: ONE BULB A WEEK
     Dates: start: 20161208
  25. UVEDOSE [Concomitant]
     Active Substance: CHOLECALCIFEROL
  26. HYDROXYZINE [Suspect]
     Active Substance: HYDROXYZINE HYDROCHLORIDE
     Route: 048
     Dates: end: 20161206
  27. PRINCI B [Concomitant]
     Active Substance: PYRIDOXINE\THIAMINE

REACTIONS (4)
  - Hepatocellular injury [Recovering/Resolving]
  - Lung disorder [Unknown]
  - Hepatic steatosis [Unknown]
  - Hepatomegaly [Unknown]

NARRATIVE: CASE EVENT DATE: 20161127
